FAERS Safety Report 4838532-4 (Version None)
Quarter: 2005Q4

REPORT INFORMATION
  Report Type: 
  Country: None (occurrence: None)
  Receive Date: 20051123
  Receipt Date: 20051111
  Transmission Date: 20060501
  Serious: Yes (Hospitalization, Other)
  Sender: FDA-Public Use
  Company Number: KII-2005-0019612

PATIENT
  Age: 13 Year
  Sex: Male

DRUGS (1)
  1. MORPHINE SULFATE [Suspect]
     Indication: PAIN
     Dosage: SEE TEXT,  ORAL
     Route: 048

REACTIONS (17)
  - ALANINE AMINOTRANSFERASE INCREASED [None]
  - ASPARTATE AMINOTRANSFERASE INCREASED [None]
  - COAGULOPATHY [None]
  - DEPRESSED LEVEL OF CONSCIOUSNESS [None]
  - HEART RATE INCREASED [None]
  - HYPOTENSION [None]
  - HYPOVENTILATION [None]
  - INTENTIONAL DRUG MISUSE [None]
  - INTERNATIONAL NORMALISED RATIO INCREASED [None]
  - METABOLIC ACIDOSIS [None]
  - PANCREATITIS [None]
  - PROTHROMBIN TIME PROLONGED [None]
  - RESPIRATORY ACIDOSIS [None]
  - RESPIRATORY RATE DECREASED [None]
  - SOMNOLENCE [None]
  - TROPONIN INCREASED [None]
  - WHITE BLOOD CELL COUNT INCREASED [None]
